FAERS Safety Report 4808249-0 (Version None)
Quarter: 2005Q4

REPORT INFORMATION
  Report Type: 
  Country: None (occurrence: None)
  Receive Date: 20051021
  Receipt Date: 20051005
  Transmission Date: 20060501
  Serious: Yes (Death)
  Sender: FDA-Public Use
  Company Number: 12672

PATIENT
  Age: 3 Year
  Sex: Male

DRUGS (1)
  1. VINCRISTINE [Suspect]
     Indication: ACUTE LYMPHOCYTIC LEUKAEMIA

REACTIONS (26)
  - BLADDER DISORDER [None]
  - BRAIN OEDEMA [None]
  - COMA [None]
  - CONFUSIONAL STATE [None]
  - DEMYELINATION [None]
  - DEPRESSED LEVEL OF CONSCIOUSNESS [None]
  - DIPLEGIA [None]
  - DRUG ADMINISTRATION ERROR [None]
  - HEART RATE INCREASED [None]
  - HYPOKINESIA [None]
  - INCORRECT ROUTE OF DRUG ADMINISTRATION [None]
  - IRRITABILITY [None]
  - MENINGISM [None]
  - MUSCULOSKELETAL STIFFNESS [None]
  - NERVE DEGENERATION [None]
  - NERVE ROOT LESION [None]
  - NERVOUS SYSTEM DISORDER [None]
  - NEUROTOXICITY [None]
  - OPISTHOTONUS [None]
  - PAIN IN EXTREMITY [None]
  - PYREXIA [None]
  - RESPIRATORY ARREST [None]
  - SENSORY DISTURBANCE [None]
  - SPINAL CORD DISORDER [None]
  - SPINAL CORD OEDEMA [None]
  - URINARY RETENTION [None]
